FAERS Safety Report 10420684 (Version 1)
Quarter: 2014Q3

REPORT INFORMATION
  Report Type: Spontaneous
  Country: US (occurrence: None)
  Receive Date: 20140703
  Receipt Date: 20140703
  Transmission Date: 20150326
  Serious: Yes (Death)
  Sender: FDA-Public Use
  Company Number: 2014020111

PATIENT
  Age: 33 Year
  Sex: Male

DRUGS (3)
  1. AMPHETAMINE [Suspect]
     Active Substance: AMPHETAMINE
  2. OXYCODONE (OXYCODONE) [Suspect]
     Active Substance: OXYCODONE
  3. CARISOPRODOL (CARISOPRODOL) [Suspect]
     Active Substance: CARISOPRODOL

REACTIONS (1)
  - Drug abuse [None]

NARRATIVE: CASE EVENT DATE: 2012
